FAERS Safety Report 11426653 (Version 2)
Quarter: 2015Q3

REPORT INFORMATION
  Report Type: Spontaneous
  Country: US (occurrence: US)
  Receive Date: 20150821
  Receipt Date: 20150916
  Transmission Date: 20151125
  Serious: Yes (Other)
  Sender: FDA-Public Use
  Company Number: US-ELI_LILLY_AND_COMPANY-US201307004388

PATIENT
  Sex: Male
  Weight: 70.29 kg

DRUGS (2)
  1. INSULIN HUMAN [Suspect]
     Active Substance: INSULIN HUMAN
     Dosage: UNK
     Route: 058
     Dates: end: 20130708
  2. HUMALOG [Suspect]
     Active Substance: INSULIN LISPRO
     Dosage: UNK
     Route: 058
     Dates: start: 20130708

REACTIONS (4)
  - Hypoglycaemic coma [Unknown]
  - Blood glucose decreased [Unknown]
  - Hypoglycaemia unawareness [Unknown]
  - Impaired gastric emptying [Unknown]
